FAERS Safety Report 10146107 (Version 1)
Quarter: 2014Q2

REPORT INFORMATION
  Report Type: Spontaneous
  Country: US (occurrence: None)
  Receive Date: 20140430
  Receipt Date: 20140430
  Transmission Date: 20141212
  Serious: No
  Sender: FDA-Public Use
  Company Number: None

PATIENT
  Age: 2 Year
  Sex: Male

DRUGS (1)
  1. ACTHAR [Suspect]
     Route: 058

REACTIONS (4)
  - Irritability [None]
  - Aggression [None]
  - Abdominal distension [None]
  - Peripheral swelling [None]
